FAERS Safety Report 10768340 (Version 2)
Quarter: 2015Q1

REPORT INFORMATION
  Report Type: Report from Study
  Country: CO (occurrence: CO)
  Receive Date: 20150206
  Receipt Date: 20150222
  Transmission Date: 20150721
  Serious: Yes (Other)
  Sender: FDA-Public Use
  Company Number: CO-ROCHE-1532895

PATIENT
  Age: 20 Year
  Sex: Female

DRUGS (3)
  1. XOLAIR [Suspect]
     Active Substance: OMALIZUMAB
     Route: 058
     Dates: start: 20150213
  2. CYCLOFEM [Concomitant]
  3. XOLAIR [Suspect]
     Active Substance: OMALIZUMAB
     Indication: URTICARIA CHRONIC
     Route: 058
     Dates: start: 20150130

REACTIONS (8)
  - Rash generalised [Unknown]
  - Chills [Unknown]
  - Peripheral swelling [Unknown]
  - Pruritus [Unknown]
  - Respiratory distress [Unknown]
  - Contusion [Not Recovered/Not Resolved]
  - Pyrexia [Unknown]
  - Local swelling [Unknown]

NARRATIVE: CASE EVENT DATE: 20150130
